FAERS Safety Report 8759094 (Version 1)
Quarter: 2012Q4

REPORT INFORMATION
  Report Type: 
  Country: CO (occurrence: CO)
  Receive Date: 20120829
  Receipt Date: 20120829
  Transmission Date: 20130627
  Serious: Yes (Death, Other)
  Sender: FDA-Public Use
  Company Number: CO-ABBOTT-12P-036-0973984-00

PATIENT
  Age: 83 None
  Sex: Female

DRUGS (1)
  1. HUMIRA 40 MG/ 0.8 ML PRE-FILLED SYRINGE [Suspect]
     Indication: RHEUMATOID ARTHRITIS
     Route: 058
     Dates: start: 20081124, end: 20120718

REACTIONS (4)
  - Respiratory failure [Fatal]
  - Peritonitis [Fatal]
  - Abdominal pain [Fatal]
  - Renal failure [Fatal]
